FAERS Safety Report 4482191-X (Version None)
Quarter: 2004Q4

REPORT INFORMATION
  Report Type: 
  Country: None (occurrence: None)
  Receive Date: 20041020
  Receipt Date: 20041005
  Transmission Date: 20050328
  Serious: Yes (Hospitalization)
  Sender: FDA-Public Use
  Company Number: USA041080383

PATIENT
  Age: 90 Year
  Sex: Female

DRUGS (4)
  1. FORTEO [Suspect]
     Indication: OSTEOPOROSIS
     Dates: start: 20040101, end: 20041001
  2. PREDNISONE [Concomitant]
  3. XANAX (ALPRAZOLAM DUM) [Concomitant]
  4. NOVOLIN (INSULIN HUMAN INJECTION, ISOPHANE) [Concomitant]

REACTIONS (3)
  - CHRONIC OBSTRUCTIVE AIRWAYS DISEASE EXACERBATED [None]
  - DIZZINESS [None]
  - PHARMACEUTICAL PRODUCT COMPLAINT [None]
